FAERS Safety Report 5254484-X (Version None)
Quarter: 2007Q1

REPORT INFORMATION
  Report Type: 
  Country: None (occurrence: None)
  Receive Date: 20070302
  Receipt Date: 20070219
  Transmission Date: 20070707
  Serious: Yes (Other)
  Sender: FDA-Public Use
  Company Number: FR-PFIZER INC-2007004202

PATIENT
  Sex: Female
  Weight: 66 kg

DRUGS (5)
  1. LYRICA [Suspect]
     Indication: BACK PAIN
     Route: 048
  2. CLONAZEPAM [Concomitant]
  3. MORPHINE SULFATE [Concomitant]
  4. EFFEXOR [Concomitant]
     Route: 048
  5. ATARAX [Concomitant]
     Route: 048

REACTIONS (6)
  - CONSTIPATION [None]
  - LOSS OF CONSCIOUSNESS [None]
  - MUCOUS STOOLS [None]
  - MUSCLE SPASMS [None]
  - ROAD TRAFFIC ACCIDENT [None]
  - SYNCOPE [None]
